FAERS Safety Report 4427372-6 (Version None)
Quarter: 2004Q3

REPORT INFORMATION
  Report Type: 
  Country: None (occurrence: None)
  Receive Date: 20040816
  Receipt Date: 20040816
  Transmission Date: 20050211
  Serious: No
  Sender: FDA-Public Use
  Company Number: None

PATIENT
  Sex: Female

DRUGS (13)
  1. GATIFLOXACIN [Suspect]
     Indication: CELLULITIS
     Dosage: 400 MG 1X/D PO
     Route: 048
     Dates: start: 20040609
  2. FUROSEMIDE [Concomitant]
  3. HYDRLAZINE [Concomitant]
  4. AMIODARONE [Concomitant]
  5. ADVAIR DISKUS 100/50 [Concomitant]
  6. ATORVASTATIN [Concomitant]
  7. CAPTOPRIL [Concomitant]
  8. SENNA-S [Concomitant]
  9. LEVOTHYROXINE SODIUM [Concomitant]
  10. NIFEREX [Concomitant]
  11. POTASSIUM [Concomitant]
  12. ROSIGLITIZONE [Concomitant]
  13. METOPROLOL [Concomitant]

REACTIONS (3)
  - FEELING ABNORMAL [None]
  - HYPERHIDROSIS [None]
  - HYPOGLYCAEMIA [None]
